FAERS Safety Report 15076982 (Version 1)
Quarter: 2018Q2

REPORT INFORMATION
  Report Type: Report from Study
  Country: US (occurrence: US)
  Receive Date: 20180627
  Receipt Date: 20180627
  Transmission Date: 20180711
  Serious: Yes (Other)
  Sender: FDA-Public Use
  Company Number: US-MYLANLABS-2018M1017715

PATIENT
  Age: 48 Year
  Sex: Female
  Weight: 67 kg

DRUGS (2)
  1. GLATIRAMER ACETATE INJECTION [Suspect]
     Active Substance: GLATIRAMER ACETATE
     Dosage: 40 MG, 3XW
     Route: 058
     Dates: start: 201803
  2. GLATIRAMER ACETATE INJECTION [Suspect]
     Active Substance: GLATIRAMER ACETATE
     Indication: RELAPSING-REMITTING MULTIPLE SCLEROSIS
     Dosage: 40 MG, Q3W
     Route: 058

REACTIONS (11)
  - Blood pressure increased [Not Recovered/Not Resolved]
  - Pruritus generalised [Unknown]
  - Urticaria [Unknown]
  - Rash generalised [Unknown]
  - Pain [Unknown]
  - Injection site pain [Unknown]
  - Heart rate decreased [Not Recovered/Not Resolved]
  - Oxygen saturation decreased [Unknown]
  - Mass [Not Recovered/Not Resolved]
  - Nausea [Unknown]
  - Chest pain [Unknown]

NARRATIVE: CASE EVENT DATE: 20180611
